FAERS Safety Report 6310436-X (Version None)
Quarter: 2009Q3

REPORT INFORMATION
  Report Type: 
  Country: None (occurrence: None)
  Receive Date: 20090814
  Receipt Date: 20080701
  Transmission Date: 20100115
  Serious: Yes (Other)
  Sender: FDA-Public Use
  Company Number: BR-PFIZER INC-2008055517

PATIENT
  Age: 73 Year

DRUGS (1)
  1. VIAGRA [Suspect]
     Indication: ERECTILE DYSFUNCTION
     Dosage: 50 MG, AS NEEDED
     Route: 048

REACTIONS (3)
  - DRUG INEFFECTIVE [None]
  - HEADACHE [None]
  - VISUAL ACUITY REDUCED [None]
